FAERS Safety Report 9620673 (Version 4)
Quarter: 2014Q1

REPORT INFORMATION
  Report Type: Report from Study
  Country: AU (occurrence: AU)
  Receive Date: 20131015
  Receipt Date: 20140106
  Transmission Date: 20141002
  Serious: Yes (Hospitalization, Disabling, Other)
  Sender: FDA-Public Use
  Company Number: AU-ROCHE-1260001

PATIENT
  Sex: Female
  Weight: 89 kg

DRUGS (10)
  1. ACTEMRA [Suspect]
     Indication: RHEUMATOID ARTHRITIS
     Route: 042
     Dates: start: 20110309, end: 20130716
  2. ACTEMRA [Suspect]
     Route: 042
     Dates: start: 20130326
  3. ACULAR [Concomitant]
     Dosage: 5 MG/ML EYE DROPS 1 DROP QID RIGHT EYE.
     Route: 065
  4. CALTRATE [Concomitant]
     Dosage: WITH FOOD.
     Route: 065
  5. CAPADEX [Concomitant]
     Route: 065
  6. CELEBREX [Concomitant]
     Route: 065
  7. KLIOVANCE [Concomitant]
     Route: 065
  8. MONOPLUS [Concomitant]
     Dosage: 20/12.5 MG
     Route: 065
  9. NEXIUM [Concomitant]
     Route: 065
  10. SALAZOPYRIN [Concomitant]
     Dosage: AS DIRECTED
     Route: 065

REACTIONS (2)
  - Lower respiratory tract infection [Recovered/Resolved]
  - Pulmonary sarcoidosis [Not Recovered/Not Resolved]
